FAERS Safety Report 9726479 (Version 3)
Quarter: 2013Q4

REPORT INFORMATION
  Report Type: Spontaneous
  Country: NO (occurrence: None)
  Receive Date: 20131129
  Receipt Date: 20131224
  Transmission Date: 20140711
  Serious: Yes (Hospitalization)
  Sender: FDA-Public Use
  Company Number: AUR-APL-2013-09878

PATIENT
  Age: 59 Year
  Sex: Female

DRUGS (7)
  1. SIMVASTATIN [Suspect]
     Indication: HYPERCHOLESTEROLAEMIA
     Route: 048
     Dates: start: 200712, end: 20131130
  2. LEVAXIN (LEVOTHYROXINE SODIUM) [Concomitant]
  3. CETIRIZINE (CETIRIZINE) [Concomitant]
  4. METFORMIN (METFORMIN) [Concomitant]
  5. PANTOPRAZOL (PANTOPRAZOLE SODIUM SESQUIHYDRATE) [Concomitant]
  6. VALLERGAN (ALIMEMAZINE TARTRATE) [Concomitant]
  7. INSULATARD (INSULIN HUMAN INJECTION, ISOPHANE) [Concomitant]

REACTIONS (2)
  - Pleurisy [None]
  - Pericarditis [None]
